FAERS Safety Report 10744269 (Version 1)
Quarter: 2015Q1

REPORT INFORMATION
  Report Type: Spontaneous
  Country: US (occurrence: None)
  Receive Date: 20150126
  Receipt Date: 20150126
  Transmission Date: 20150721
  Serious: Yes (Other)
  Sender: FDA-Public Use
  Company Number: None

PATIENT
  Age: 51 Year
  Sex: Female
  Weight: 79.38 kg

DRUGS (2)
  1. TRAMADOL 50 MG COMPOUNDED [Suspect]
     Active Substance: TRAMADOL
     Indication: SURGERY
     Dosage: 1 PILLS THREE TIMES DAILY TAKEN BY MOUTH
     Route: 048
     Dates: start: 20140404, end: 20150123
  2. TRAMADOL 50 MG COMPOUNDED [Suspect]
     Active Substance: TRAMADOL
     Indication: PROCEDURAL PAIN
     Dosage: 1 PILLS THREE TIMES DAILY TAKEN BY MOUTH
     Route: 048
     Dates: start: 20140404, end: 20150123

REACTIONS (2)
  - Adverse event [None]
  - Product substitution issue [None]

NARRATIVE: CASE EVENT DATE: 20140404
